FAERS Safety Report 5231129-6 (Version None)
Quarter: 2007Q1

REPORT INFORMATION
  Report Type: 
  Country: None (occurrence: None)
  Receive Date: 20070206
  Receipt Date: 20070125
  Transmission Date: 20070707
  Serious: Yes (Death)
  Sender: FDA-Public Use
  Company Number: CA-ROCHE-480173

PATIENT
  Age: 15 Year
  Sex: Male

DRUGS (13)
  1. MYCOPHENOLATE MOFETIL [Suspect]
     Indication: DRUG USE FOR UNKNOWN INDICATION
     Route: 042
  2. CYCLOSPORINE [Suspect]
     Indication: DRUG USE FOR UNKNOWN INDICATION
     Route: 042
  3. METHOTREXATE [Suspect]
     Indication: DRUG USE FOR UNKNOWN INDICATION
     Route: 042
  4. METHYLPREDNISOLONE 16MG TAB [Suspect]
     Indication: DRUG USE FOR UNKNOWN INDICATION
     Route: 065
  5. OCTREOTIDE ACETATE [Suspect]
     Indication: DRUG USE FOR UNKNOWN INDICATION
     Route: 042
  6. NEUPOGEN [Concomitant]
  7. FLUDARABINE [Concomitant]
  8. CYCLOPHOSPHAMIDE [Concomitant]
  9. SULFAMETHOXAZOLE [Concomitant]
  10. 1 CONCOMITANT DRUG [Concomitant]
     Dosage: DRUG NAME REPORTED AS IMMUNOGLOBULINS.
  11. ATGAM [Concomitant]
  12. FLUCONAZOLE [Concomitant]
  13. ACYCLOVIR [Concomitant]

REACTIONS (16)
  - ABDOMINAL PAIN [None]
  - BACTERIAL INFECTION [None]
  - BLOOD BILIRUBIN INCREASED [None]
  - BRAIN OEDEMA [None]
  - CARDIAC ARREST [None]
  - CEREBRAL HAEMORRHAGE [None]
  - DEATH [None]
  - DIARRHOEA [None]
  - EPISTAXIS [None]
  - GASTROINTESTINAL NECROSIS [None]
  - HYPOTENSION [None]
  - MYDRIASIS [None]
  - RASH [None]
  - RESPIRATORY ARREST [None]
  - SHOCK [None]
  - VASCULITIS [None]
